FAERS Safety Report 15140523 (Version 1)
Quarter: 2018Q3

REPORT INFORMATION
  Report Type: Spontaneous
  Country: DK (occurrence: DK)
  Receive Date: 20180713
  Receipt Date: 20180713
  Transmission Date: 20181010
  Serious: Yes (Death, Other)
  Sender: FDA-Public Use
  Company Number: DK-BRISTOL-MYERS SQUIBB COMPANY-BMS-2018-063764

PATIENT
  Age: 79 Year
  Sex: Male

DRUGS (7)
  1. ELIQUIS [Suspect]
     Active Substance: APIXABAN
     Indication: CEREBROVASCULAR ACCIDENT PROPHYLAXIS
     Dosage: 5 MG/1 DAY
     Route: 048
     Dates: start: 20180429
  2. KALEORID [Concomitant]
     Active Substance: POTASSIUM CHLORIDE
     Indication: MINERAL SUPPLEMENTATION
     Dosage: 1500 MG/1 DAY
     Route: 048
     Dates: start: 20170425
  3. INSULATARD                         /00646002/ [Concomitant]
     Active Substance: INSULIN HUMAN
     Indication: DIABETES MELLITUS
     Dosage: 42 IU/1 DAY
     Route: 058
     Dates: start: 20160616
  4. METOPROLOL. [Concomitant]
     Active Substance: METOPROLOL
     Indication: HYPERTENSION
     Dosage: 50 MG/1 DAY
     Route: 048
     Dates: start: 20160114
  5. ALFUZOSIN [Concomitant]
     Active Substance: ALFUZOSIN
     Indication: DYSURIA
     Dosage: 2.5 MG/1 DAY
     Route: 048
  6. MIRTAZAPINE. [Concomitant]
     Active Substance: MIRTAZAPINE
     Indication: DEPRESSION
     Dosage: 15 MG/1 DAY
     Route: 048
  7. CARDOPAX [Concomitant]
     Indication: ANGINA PECTORIS
     Dosage: 80 MG/1 DAY
     Route: 048
     Dates: start: 20160114

REACTIONS (4)
  - Depressed level of consciousness [Unknown]
  - Intraventricular haemorrhage [Fatal]
  - Vertebral artery dissection [Fatal]
  - Haemorrhagic cerebral infarction [Fatal]

NARRATIVE: CASE EVENT DATE: 20180621
